FAERS Safety Report 8908748 (Version 1)
Quarter: 2012Q4

REPORT INFORMATION
  Report Type: 
  Country: US (occurrence: US)
  Receive Date: 20121114
  Receipt Date: 20121114
  Transmission Date: 20130627
  Serious: Yes (Hospitalization)
  Sender: FDA-Public Use
  Company Number: US-ELI_LILLY_AND_COMPANY-US201211001336

PATIENT
  Age: 45 Year
  Sex: Male

DRUGS (3)
  1. CYMBALTA [Suspect]
     Indication: MAJOR DEPRESSION
     Dosage: 60 mg, UNK
  2. CYMBALTA [Suspect]
     Dosage: 120 mg, UNK
     Dates: start: 2004
  3. CYMBALTA [Suspect]
     Dosage: 60 mg, UNK

REACTIONS (2)
  - Hospitalisation [Unknown]
  - Abnormal sensation in eye [Recovered/Resolved]
